FAERS Safety Report 7595481-9 (Version None)
Quarter: 2011Q3

REPORT INFORMATION
  Report Type: 
  Country: None (occurrence: None)
  Receive Date: 20110707
  Receipt Date: 20110629
  Transmission Date: 20111222
  Serious: Yes (Death, Other)
  Sender: FDA-Public Use
  Company Number: JP-ROCHE-787212

PATIENT
  Age: 62 Year
  Sex: Male

DRUGS (6)
  1. FLUOROURACIL [Concomitant]
     Route: 041
  2. LEUCOVORIN CALCIUM [Concomitant]
     Route: 041
  3. IRINOTECAN HCL [Concomitant]
     Route: 041
  4. FLUOROURACIL [Concomitant]
     Route: 040
  5. AVASTIN [Suspect]
     Indication: COLON CANCER METASTATIC
     Route: 041
  6. OXALIPLATIN [Concomitant]
     Route: 041

REACTIONS (3)
  - MALIGNANT ASCITES [None]
  - WOUND INFECTION [None]
  - GASTROINTESTINAL PERFORATION [None]
